FAERS Safety Report 8418906-5 (Version None)
Quarter: 2012Q2

REPORT INFORMATION
  Report Type: 
  Country: None (occurrence: None)
  Receive Date: 20120607
  Receipt Date: 20120531
  Transmission Date: 20120825
  Serious: Yes (Life-Threatening, Hospitalization)
  Sender: FDA-Public Use
  Company Number: DE-ROCHE-1074562

PATIENT
  Age: 77 Year
  Sex: Female
  Weight: 63 kg

DRUGS (6)
  1. MAGNESIUM [Concomitant]
     Route: 048
  2. CALCIUM [Concomitant]
     Route: 048
  3. BONIVA [Suspect]
     Indication: OSTEOPOROSIS
     Route: 048
     Dates: start: 20120123, end: 20120223
  4. PANTOPRAZOLE [Concomitant]
     Route: 048
  5. AMYLASE/LIPASE/PROTEINASE [Concomitant]
     Route: 048
  6. DIMETICONE [Concomitant]
     Route: 048

REACTIONS (3)
  - DYSPNOEA EXERTIONAL [None]
  - CARDIOVASCULAR DISORDER [None]
  - PULMONARY EMBOLISM [None]
